FAERS Safety Report 5674011-2 (Version None)
Quarter: 2008Q1

REPORT INFORMATION
  Report Type: 
  Country: None (occurrence: None)
  Receive Date: 20080320
  Receipt Date: 20080229
  Transmission Date: 20080703
  Serious: Yes (Other)
  Sender: FDA-Public Use
  Company Number: US-JNJFOC-20080301037

PATIENT
  Age: 68 Year
  Sex: Female

DRUGS (1)
  1. REOPRO [Suspect]
     Indication: CATHETERISATION CARDIAC

REACTIONS (2)
  - ANGIOEDEMA [None]
  - DYSPNOEA [None]
